FAERS Safety Report 5522020-6 (Version None)
Quarter: 2007Q4

REPORT INFORMATION
  Report Type: 
  Country: None (occurrence: None)
  Receive Date: 20071120
  Receipt Date: 20071113
  Transmission Date: 20080405
  Serious: Yes (Hospitalization)
  Sender: FDA-Public Use
  Company Number: IT-AVENTIS-200720442GDDC

PATIENT
  Age: 61 Year
  Sex: Male

DRUGS (4)
  1. LANTUS [Suspect]
     Indication: DIABETES MELLITUS
     Route: 058
     Dates: start: 20071030, end: 20071030
  2. RAPTIVA [Suspect]
     Indication: PSORIASIS
     Route: 058
     Dates: start: 20071031, end: 20071031
  3. VOLTAREN [Concomitant]
     Indication: ARTHRALGIA
     Route: 048
     Dates: start: 20071101, end: 20071102
  4. AULIN [Concomitant]
     Indication: ARTHRALGIA
     Route: 048
     Dates: start: 20071101, end: 20071102

REACTIONS (4)
  - ARTHRALGIA [None]
  - DERMATITIS EXFOLIATIVE [None]
  - GRAVITATIONAL OEDEMA [None]
  - INJECTION SITE ERYTHEMA [None]
